FAERS Safety Report 5060591-7 (Version None)
Quarter: 2006Q2

REPORT INFORMATION
  Report Type: 
  Country: None (occurrence: None)
  Receive Date: 20060630
  Receipt Date: 20060105
  Transmission Date: 20061013
  Serious: Yes (Other)
  Sender: FDA-Public Use
  Company Number: US200601000934

PATIENT
  Age: 16 Year
  Sex: Male

DRUGS (1)
  1. HUMALOG [Suspect]
     Indication: DIABETES MELLITUS
     Dosage: SUB. PUMP
     Route: 058
     Dates: start: 19990101

REACTIONS (9)
  - ABDOMINAL PAIN UPPER [None]
  - BLOOD GLUCOSE INCREASED [None]
  - CONSTIPATION [None]
  - DEHYDRATION [None]
  - DIABETIC KETOACIDOSIS [None]
  - DIZZINESS [None]
  - MOBILITY DECREASED [None]
  - NAUSEA [None]
  - STOMACH DISCOMFORT [None]
